FAERS Safety Report 5410856-1 (Version None)
Quarter: 2007Q3

REPORT INFORMATION
  Report Type: 
  Country: None (occurrence: None)
  Receive Date: 20070810
  Receipt Date: 20070807
  Transmission Date: 20080115
  Serious: Yes (Other)
  Sender: FDA-Public Use
  Company Number: PHBS1990AU01981

PATIENT
  Age: 78 Year
  Sex: Female
  Weight: 75 kg

DRUGS (7)
  1. COLCHICINE [Suspect]
     Dosage: 0.5 MG, PRN
     Route: 065
     Dates: end: 19881224
  2. NAPROSYN [Suspect]
     Dosage: 280 MG, PRN
     Route: 065
     Dates: end: 19881224
  3. ALLOPURINOL [Suspect]
     Indication: GOUT
     Dosage: 200 MG, DAILY
     Route: 065
     Dates: start: 19881115, end: 19881224
  4. ALLOPURINOL [Suspect]
     Dosage: 200 MG DAILY
     Dates: start: 19881115, end: 19881224
  5. FERRO-GRADUMET [Suspect]
     Dosage: UNK, UNK
     Route: 065
     Dates: end: 19881224
  6. METAMUCIL [Suspect]
     Dosage: UNK, UNK
     Route: 065
     Dates: end: 19881224
  7. SLOW-K [Suspect]
     Dosage: 2 UNK, DAILY
     Route: 065
     Dates: end: 19881224

REACTIONS (6)
  - FATIGUE [None]
  - MALAISE [None]
  - NEPHRITIS INTERSTITIAL [None]
  - PERIORBITAL OEDEMA [None]
  - PRURITUS [None]
  - RASH [None]
